FAERS Safety Report 9780606 (Version 4)
Quarter: 2014Q1

REPORT INFORMATION
  Report Type: Report from Study
  Country: NL (occurrence: NL)
  Receive Date: 20131224
  Receipt Date: 20140207
  Transmission Date: 20141002
  Serious: Yes (Life-Threatening, Hospitalization, Other)
  Sender: FDA-Public Use
  Company Number: NL-JNJFOC-20131210418

PATIENT
  Age: 60 Year
  Sex: Male
  Weight: 74.2 kg

DRUGS (7)
  1. SIMPONI [Suspect]
     Indication: ANKYLOSING SPONDYLITIS
     Route: 058
     Dates: start: 20131107
  2. SIMPONI [Suspect]
     Indication: ANKYLOSING SPONDYLITIS
     Route: 058
     Dates: start: 201310
  3. INFLIXIMAB [Suspect]
     Indication: ANKYLOSING SPONDYLITIS
     Route: 042
     Dates: start: 2001
  4. HYDROCHLOROTHIAZID [Concomitant]
     Route: 065
  5. PIROXICAM [Concomitant]
     Dosage: IF NEED 10 MG 1 OR 2 TIMES A WEEK
     Route: 065
  6. SALOFALK [Concomitant]
     Route: 065
  7. SERETIDE [Concomitant]
     Dosage: 50/500MCG
     Route: 065

REACTIONS (11)
  - Hypovolaemic shock [Recovered/Resolved]
  - Rectal haemorrhage [Recovering/Resolving]
  - Proctitis [Unknown]
  - Colitis [Recovering/Resolving]
  - Haemoglobin decreased [Recovering/Resolving]
  - Uveitis [Recovered/Resolved]
  - Cystitis [Recovered/Resolved]
  - Dermatitis allergic [Unknown]
  - Dyspnoea [Unknown]
  - Fatigue [Unknown]
  - Pain [Unknown]
